FAERS Safety Report 20209917 (Version 3)
Quarter: 2022Q3

REPORT INFORMATION
  Report Type: Spontaneous
  Country: JP (occurrence: JP)
  Receive Date: 20211221
  Receipt Date: 20220929
  Transmission Date: 20221026
  Serious: Yes (Hospitalization, Other)
  Sender: FDA-Public Use
  Company Number: JP-LUPIN PHARMACEUTICALS INC.-2021-25003

PATIENT
  Age: 238 Day
  Sex: Female

DRUGS (4)
  1. CALCIUM [Suspect]
     Active Substance: CALCIUM
     Indication: Mineral supplementation
     Dosage: 1 GRAM, QD
     Route: 065
  2. ALFACALCIDOL [Suspect]
     Active Substance: ALFACALCIDOL
     Indication: Rickets
     Dosage: 0.1 MICROGRAM, QD
     Route: 065
  3. HYDROCORTISONE [Concomitant]
     Active Substance: HYDROCORTISONE
     Indication: Lung disorder
     Dosage: 0.5 MILLIGRAM/KILOGRAM (0.25 MG X 4 INTRAVENOUS INFUSION)
     Route: 042
  4. HYDROCORTISONE [Concomitant]
     Active Substance: HYDROCORTISONE
     Dosage: 0.8 TO 1.2 MG/DAY UNTIL DAY 124 OF THE LIFE
     Route: 042

REACTIONS (4)
  - Calculus urinary [Recovered/Resolved]
  - Hypercalcaemia [Recovered/Resolved]
  - Hypercalciuria [Recovered/Resolved]
  - Hydronephrosis [Recovered/Resolved]
